FAERS Safety Report 11145826 (Version 1)
Quarter: 2015Q2

REPORT INFORMATION
  Report Type: Spontaneous
  Country: KR (occurrence: None)
  Receive Date: 20150526
  Receipt Date: 20150526
  Transmission Date: 20150821
  Serious: Yes (Hospitalization)
  Sender: FDA-Public Use
  Company Number: FK201502361

PATIENT
  Age: 40 Year
  Sex: Male

DRUGS (2)
  1. CYTARABINE. [Suspect]
     Active Substance: CYTARABINE
     Indication: B PRECURSOR TYPE ACUTE LEUKAEMIA
  2. MITOXANTRONE [Suspect]
     Active Substance: MITOXANTRONE HYDROCHLORIDE
     Indication: B PRECURSOR TYPE ACUTE LEUKAEMIA

REACTIONS (8)
  - Febrile neutropenia [None]
  - Cytomegalovirus infection [None]
  - Appendiceal abscess [None]
  - Enterococcus test positive [None]
  - Blood pressure decreased [None]
  - Bacteraemia [None]
  - Septic shock [None]
  - Escherichia test positive [None]
